FAERS Safety Report 15795211 (Version 2)
Quarter: 2019Q1

REPORT INFORMATION
  Report Type: Other
  Country: AU (occurrence: AU)
  Receive Date: 20190107
  Receipt Date: 20190108
  Transmission Date: 20190417
  Serious: Yes (Death)
  Sender: FDA-Public Use
  Company Number: AU-BTG-201900001

PATIENT

DRUGS (1)
  1. DIGOXIN. [Suspect]
     Active Substance: DIGOXIN
     Indication: TOXICITY TO VARIOUS AGENTS
     Route: 065

REACTIONS (2)
  - Cardiac arrest [Fatal]
  - Brain injury [Fatal]
